FAERS Safety Report 16122944 (Version 2)
Quarter: 2019Q2

REPORT INFORMATION
  Report Type: Spontaneous
  Country: RU (occurrence: RU)
  Receive Date: 20190327
  Receipt Date: 20190401
  Transmission Date: 20190711
  Serious: Yes (Other)
  Sender: FDA-Public Use
  Company Number: RU-009507513-1811RUS005679

PATIENT
  Age: 4 Year
  Sex: Male
  Weight: 13 kg

DRUGS (14)
  1. ISENTRESS [Suspect]
     Active Substance: RALTEGRAVIR POTASSIUM
     Indication: HIV INFECTION
     Dosage: 100 MILLIGRAM, BID
     Route: 048
     Dates: start: 20180802, end: 20181001
  2. FLUCONAZOLE. [Concomitant]
     Active Substance: FLUCONAZOLE
     Indication: FUNGAL INFECTION
     Dosage: 100 MILLIGRAM, QW
     Route: 048
     Dates: start: 20180713, end: 20181126
  3. KANAMYCIN [Concomitant]
     Active Substance: KANAMYCIN\KANAMYCIN A SULFATE
     Indication: TUBERCULOSIS
     Dosage: 0.2 GRAM, QD
     Route: 030
     Dates: start: 20180720, end: 20181029
  4. URSODIOL. [Concomitant]
     Active Substance: URSODIOL
     Indication: THERAPEUTIC RESPONSE DECREASED
     Dosage: 250 MILLIGRAM, QD
     Route: 048
     Dates: start: 20180720
  5. CHOLECALCIFEROL [Concomitant]
     Active Substance: CHOLECALCIFEROL
     Indication: DISEASE PROGRESSION
     Dosage: 1000 ED , QD
     Route: 048
  6. PYRIDOXINE [Concomitant]
     Active Substance: PYRIDOXINE
     Indication: THERAPEUTIC RESPONSE DECREASED
     Dosage: 5 MILLIGRAM, QD
     Route: 048
     Dates: start: 20180720
  7. PYRAZINAMIDE. [Concomitant]
     Active Substance: PYRAZINAMIDE
     Indication: TUBERCULOSIS
     Dosage: 0.25 GRAM, QD
     Route: 048
     Dates: start: 20180720
  8. PASK [Concomitant]
     Active Substance: AMINOSALICYLATE SODIUM
     Indication: TUBERCULOSIS
     Dosage: 2.5 GRAM, QD
     Route: 048
     Dates: start: 20180720
  9. ISONIAZID. [Concomitant]
     Active Substance: ISONIAZID
     Indication: TUBERCULOSIS
     Dosage: 0.12 GRAM, QD
     Route: 030
     Dates: start: 20180720
  10. LEVOFLOXACIN. [Concomitant]
     Active Substance: LEVOFLOXACIN
     Indication: TUBERCULOSIS
     Dosage: 0.1 GRAM, QD
     Route: 048
     Dates: start: 20180720, end: 20190118
  11. CEFOPERAZONE [Concomitant]
     Active Substance: CEFOPERAZONE
     Indication: BACTERIAL INFECTION
     Dosage: 500 MILLIGRAM, TID
     Route: 030
     Dates: start: 20180731, end: 20180809
  12. HYLAK FORTE [Concomitant]
     Indication: DYSBIOSIS
     Dosage: 20 GTT DROPS, TID
     Dates: start: 20180720, end: 20180905
  13. SULFAMETHOXAZOLE (+) TRIMETHOPRIM [Concomitant]
     Active Substance: SULFAMETHOXAZOLE\TRIMETHOPRIM
     Indication: PNEUMOCYSTIS JIROVECII PNEUMONIA
     Dosage: 320 MG/ 64 MG (3 TIMES PER WEEK)
     Dates: start: 20180713, end: 20181126
  14. PHOSPHOGLIV [Concomitant]
     Indication: HEPATITIS
     Dosage: 32 MG/17 MG , QD
     Route: 048
     Dates: start: 20180725, end: 20180825

REACTIONS (2)
  - Hallucination, visual [Recovered/Resolved]
  - Nightmare [Recovered/Resolved]

NARRATIVE: CASE EVENT DATE: 20180809
